FAERS Safety Report 24355279 (Version 2)
Quarter: 2024Q4

REPORT INFORMATION
  Report Type: Report from Study
  Country: US (occurrence: US)
  Receive Date: 20240924
  Receipt Date: 20241003
  Transmission Date: 20250115
  Serious: Yes (Other)
  Sender: ABBVIE
  Company Number: US-ABBVIE-5839246

PATIENT
  Sex: Male
  Weight: 91 kg

DRUGS (13)
  1. HUMIRA [Suspect]
     Active Substance: ADALIMUMAB
     Indication: Colitis ulcerative
     Dosage: FORM STRENGTH: 40 MG?CITRATE FREE
     Route: 058
     Dates: start: 20240201
  2. SYMBICORT [Concomitant]
     Active Substance: BUDESONIDE\FORMOTEROL FUMARATE DIHYDRATE
     Indication: Respiratory tract congestion
     Dosage: 80-4.5 MCG?1 TO 2 PUFFS /DAY
  3. FLUTICASONE [Concomitant]
     Active Substance: FLUTICASONE
     Indication: Sinus congestion
     Dosage: 1/NOSTRIL -1/DAY
  4. AZELASTINE [Concomitant]
     Active Substance: AZELASTINE
     Indication: Paranasal sinus hypersecretion
     Dosage: 1/NOSTRIL - 2/DAY
  5. CYCLOBENZAPRINE [Concomitant]
     Active Substance: CYCLOBENZAPRINE
     Indication: Back pain
     Dosage: 1 TO 2 TABS 3 TIMES PER DAY
  6. CELECOXIB [Concomitant]
     Active Substance: CELECOXIB
     Indication: Pain
  7. VITAMIN B COMPLEX [Concomitant]
     Active Substance: CYANOCOBALAMIN\DEXPANTHENOL\NIACINAMIDE\PYRIDOXINE HYDROCHLORIDE\RIBOFLAVIN 5^-PHOSPHATE SODIUM\THIA
     Indication: Routine health maintenance
     Dosage: 1
  8. B12 [Concomitant]
     Indication: Routine health maintenance
  9. VITAMIN C [Concomitant]
     Active Substance: ASCORBIC ACID
     Indication: Routine health maintenance
  10. MAGNESIUM [Concomitant]
     Active Substance: MAGNESIUM
     Indication: Product used for unknown indication
  11. COENZYME Q10 [Concomitant]
     Active Substance: DIETARY SUPPLEMENT\UBIDECARENONE
     Indication: Routine health maintenance
  12. ACETYLCARNITINE [Concomitant]
     Active Substance: ACETYLCARNITINE
     Indication: Routine health maintenance
  13. DICYCLOMINE [Concomitant]
     Active Substance: DICYCLOMINE HYDROCHLORIDE
     Indication: Colitis ulcerative
     Dosage: TIME INTERVAL: 0.33333333 DAYS

REACTIONS (32)
  - Anaemia [Unknown]
  - Headache [Recovered/Resolved]
  - Pollakiuria [Recovered/Resolved]
  - Amnesia [Unknown]
  - Adverse drug reaction [Unknown]
  - Contusion [Recovering/Resolving]
  - Psoriasis [Recovering/Resolving]
  - Myalgia [Recovered/Resolved]
  - Pain [Recovered/Resolved]
  - Kyphosis [Recovered/Resolved]
  - Sciatica [Not Recovered/Not Resolved]
  - Musculoskeletal disorder [Recovered/Resolved]
  - Pain [Unknown]
  - Mobility decreased [Recovered/Resolved]
  - Tremor [Unknown]
  - Eczema [Recovering/Resolving]
  - Bone pain [Unknown]
  - Arthralgia [Unknown]
  - Back pain [Unknown]
  - Chest pain [Unknown]
  - Musculoskeletal stiffness [Recovered/Resolved]
  - Acquired oesophageal web [Not Recovered/Not Resolved]
  - Diverticulum intestinal [Not Recovered/Not Resolved]
  - Asthma [Not Recovered/Not Resolved]
  - Sleep apnoea syndrome [Not Recovered/Not Resolved]
  - Arthralgia [Not Recovered/Not Resolved]
  - Nerve injury [Not Recovered/Not Resolved]
  - Joint range of motion decreased [Not Recovered/Not Resolved]
  - Barrett^s oesophagus [Not Recovered/Not Resolved]
  - Fatigue [Not Recovered/Not Resolved]
  - Arthropathy [Unknown]
  - Neck pain [Not Recovered/Not Resolved]

NARRATIVE: CASE EVENT DATE: 20240101
